FAERS Safety Report 9475567 (Version 1)
Quarter: 2013Q3

REPORT INFORMATION
  Report Type: Report from Study
  Country: CA (occurrence: CA)
  Receive Date: 20130826
  Receipt Date: 20130826
  Transmission Date: 20140515
  Serious: Yes (Other)
  Sender: FDA-Public Use
  Company Number: CA-ROCHE-1265094

PATIENT
  Age: 53 Year
  Sex: Male

DRUGS (3)
  1. PEGASYS [Suspect]
     Indication: CHRONIC HEPATITIS C
     Route: 058
     Dates: start: 20130204, end: 20130819
  2. COPEGUS [Suspect]
     Indication: CHRONIC HEPATITIS C
     Dosage: 35 TABLETS/WEEK
     Route: 048
     Dates: start: 20130204, end: 20130819
  3. VICTRELIS [Suspect]
     Indication: CHRONIC HEPATITIS C
     Route: 048
     Dates: start: 20130204, end: 20130819

REACTIONS (1)
  - Viral test positive [Not Recovered/Not Resolved]
